FAERS Safety Report 5128889-1 (Version None)
Quarter: 2006Q4

REPORT INFORMATION
  Report Type: 
  Country: None (occurrence: None)
  Receive Date: 20061017
  Receipt Date: 20060503
  Transmission Date: 20070319
  Serious: No
  Sender: FDA-Public Use
  Company Number: US-GLAXOSMITHKLINE-A0604214A

PATIENT
  Age: 6 Year
  Sex: Male

DRUGS (2)
  1. CEFTIN [Suspect]
     Dosage: 1TSP TWICE PER DAY
     Route: 048
     Dates: start: 20060430
  2. FLOVENT [Concomitant]

REACTIONS (2)
  - CIRCUMSTANCE OR INFORMATION CAPABLE OF LEADING TO MEDICATION ERROR [None]
  - DRUG INEFFECTIVE [None]
